FAERS Safety Report 14031752 (Version 1)
Quarter: 2017Q4

REPORT INFORMATION
  Report Type: Spontaneous
  Country: US (occurrence: US)
  Receive Date: 20171002
  Receipt Date: 20171002
  Transmission Date: 20180321
  Serious: No
  Sender: FDA-Public Use
  Company Number: US-GALDERMA-US17005453

PATIENT
  Sex: Female

DRUGS (4)
  1. RESTYLANE LYFT WITH LIDOCAINE [Concomitant]
     Dates: start: 20161109, end: 20161109
  2. RESTYLANE SILK [Concomitant]
     Active Substance: HYALURONIC ACID
     Dates: start: 20170328, end: 20170328
  3. METROGEL [Suspect]
     Active Substance: METRONIDAZOLE
     Indication: PRODUCT USED FOR UNKNOWN INDICATION
     Route: 061
  4. RESTYLANE [Concomitant]
     Active Substance: HYALURONIC ACID
     Dates: start: 20161109, end: 20161109

REACTIONS (2)
  - Induration [Not Recovered/Not Resolved]
  - Swelling [Not Recovered/Not Resolved]
